FAERS Safety Report 12233716 (Version 2)
Quarter: 2016Q2

REPORT INFORMATION
  Report Type: Report from Study
  Country: CN (occurrence: CN)
  Receive Date: 20160404
  Receipt Date: 20160502
  Transmission Date: 20160815
  Serious: Yes (Death)
  Sender: FDA-Public Use
  Company Number: CN-ROCHE-1735676

PATIENT
  Sex: Male
  Weight: 49 kg

DRUGS (1)
  1. AVASTIN [Suspect]
     Active Substance: BEVACIZUMAB
     Indication: COLORECTAL CANCER METASTATIC
     Route: 041
     Dates: start: 20141225, end: 20150702

REACTIONS (3)
  - Disease progression [Fatal]
  - Drug ineffective [Unknown]
  - Condition aggravated [Fatal]
